FAERS Safety Report 24640700 (Version 3)
Quarter: 2024Q4

REPORT INFORMATION
  Report Type: Spontaneous
  Country: GB (occurrence: GB)
  Receive Date: 20241120
  Receipt Date: 20241217
  Transmission Date: 20250115
  Serious: Yes (Other)
  Sender: AUROBINDO
  Company Number: GB-AUROBINDO-AUR-APL-2024-056385

PATIENT
  Age: 66 Year
  Sex: Female

DRUGS (1)
  1. HYDROCHLOROTHIAZIDE\LOSARTAN POTASSIUM [Suspect]
     Active Substance: HYDROCHLOROTHIAZIDE\LOSARTAN POTASSIUM
     Indication: Hypertension
     Dosage: UNK, TWO TIMES A DAY (100/25MG HALF OF THE TABLET IN MORNING AND  HALF IN THE EVENING)
     Route: 048
     Dates: start: 20241029, end: 20241106

REACTIONS (17)
  - Treatment noncompliance [Recovered/Resolved]
  - Rash [Recovered/Resolved]
  - Influenza like illness [Recovered/Resolved]
  - Drug hypersensitivity [Recovered/Resolved]
  - Night sweats [Recovered/Resolved]
  - Insomnia [Recovered/Resolved]
  - Nightmare [Recovered/Resolved]
  - Fatigue [Recovered/Resolved]
  - Restlessness [Recovered/Resolved]
  - Depressed mood [Recovered/Resolved]
  - Anxiety [Recovered/Resolved]
  - Crying [Recovered/Resolved]
  - Headache [Recovered/Resolved]
  - Therapy cessation [Recovered/Resolved]
  - Inappropriate schedule of product administration [Recovered/Resolved]
  - Wrong technique in product usage process [Recovered/Resolved]
  - Product use issue [Recovered/Resolved]

NARRATIVE: CASE EVENT DATE: 20241029
